FAERS Safety Report 6761151-X (Version None)
Quarter: 2010Q2

REPORT INFORMATION
  Report Type: 
  Country: None (occurrence: None)
  Receive Date: 20100608
  Receipt Date: 20100527
  Transmission Date: 20101027
  Serious: Yes (Hospitalization, Disabling)
  Sender: FDA-Public Use
  Company Number: US-ELI_LILLY_AND_COMPANY-US201006000301

PATIENT
  Age: 64 Year
  Sex: Male

DRUGS (6)
  1. BYETTA [Suspect]
  2. FLOMAX [Concomitant]
  3. TARKA [Concomitant]
  4. LOVAZA [Concomitant]
  5. GLUMETZA [Concomitant]
  6. HUMATROPE [Concomitant]
     Indication: GROWTH HORMONE DEFICIENCY
     Dosage: 2 MG, DAILY (1/D)
     Route: 058
     Dates: start: 20090701

REACTIONS (3)
  - CELLULITIS [None]
  - PYREXIA [None]
  - RENAL DISORDER [None]
